FAERS Safety Report 16465439 (Version 1)
Quarter: 2019Q2

REPORT INFORMATION
  Report Type: Spontaneous
  Country: US (occurrence: US)
  Receive Date: 20190621
  Receipt Date: 20190621
  Transmission Date: 20190711
  Serious: No
  Sender: FDA-Public Use
  Company Number: US-BAUSCH-BL-2019-016970

PATIENT
  Sex: Male

DRUGS (2)
  1. NEOMYCIN AND POLYMYXIN B SULFATES AND HYDROCORTISONE OTIC SUSP [Suspect]
     Active Substance: HYDROCORTISONE\NEOMYCIN SULFATE\POLYMYXIN B SULFATE
     Indication: OCULAR HYPERAEMIA
     Dosage: FORM OF ADMIN: OTIC SUSPENSION
     Route: 047
     Dates: start: 20190610, end: 20190610
  2. NEOMYCIN AND POLYMYXIN B SULFATES AND HYDROCORTISONE OTIC SUSP [Suspect]
     Active Substance: HYDROCORTISONE\NEOMYCIN SULFATE\POLYMYXIN B SULFATE
     Indication: EYE IRRITATION

REACTIONS (3)
  - Expired product administered [Unknown]
  - Eye irritation [Recovering/Resolving]
  - Accidental exposure to product [Unknown]

NARRATIVE: CASE EVENT DATE: 20190610
